FAERS Safety Report 4991461-8 (Version None)
Quarter: 2006Q2

REPORT INFORMATION
  Report Type: 
  Country: None (occurrence: None)
  Receive Date: 20060502
  Receipt Date: 20060418
  Transmission Date: 20061013
  Serious: Yes (Death)
  Sender: FDA-Public Use
  Company Number: 2006P1000258

PATIENT
  Age: 72 Year
  Sex: Female
  Weight: 68 kg

DRUGS (13)
  1. RETEPLASE                   (RETEPLASE) [Suspect]
     Indication: ACUTE MYOCARDIAL INFARCTION
     Dosage: IVB
     Route: 040
     Dates: start: 20051227, end: 20051227
  2. REOPRO [Suspect]
     Indication: ACUTE MYOCARDIAL INFARCTION
     Dosage: IV
     Route: 042
     Dates: start: 20051227, end: 20051227
  3. CARVEDILOL [Concomitant]
  4. ACETYLSALICYLIC ACID SRT [Concomitant]
  5. AMIODARONE HCL [Concomitant]
  6. ...................... [Concomitant]
  7. FUROSEMIDE [Concomitant]
  8. RAMIPRIL [Concomitant]
  9. ATORVASTATIN CALCIUM [Concomitant]
  10. OMEPRAZOLE [Concomitant]
  11. ISOSORBIDE MONONITRATE [Concomitant]
  12. METFORMIN [Concomitant]
  13. GLIBENCLAMIDE [Concomitant]

REACTIONS (13)
  - ACUTE MYOCARDIAL INFARCTION [None]
  - ANGINA PECTORIS [None]
  - ATRIAL FIBRILLATION [None]
  - CARDIAC ARREST [None]
  - CORONARY ARTERY OCCLUSION [None]
  - CORONARY ARTERY STENOSIS [None]
  - CYANOSIS [None]
  - DIABETES MELLITUS INADEQUATE CONTROL [None]
  - FOAMING AT MOUTH [None]
  - MYDRIASIS [None]
  - PALLOR [None]
  - STENT OCCLUSION [None]
  - URINARY TRACT INFECTION [None]
